FAERS Safety Report 4776580-3 (Version None)
Quarter: 2005Q3

REPORT INFORMATION
  Report Type: 
  Country: None (occurrence: None)
  Receive Date: 20050921
  Receipt Date: 20050913
  Transmission Date: 20060218
  Serious: Yes (Disabling)
  Sender: FDA-Public Use
  Company Number: 2005127457

PATIENT
  Age: 62 Year
  Sex: Female
  Weight: 63.5036 kg

DRUGS (6)
  1. CELEBREX [Suspect]
     Indication: ARTHRALGIA
     Dosage: 400 MG (200 MG, 2 IN 1 D)
  2. PLAQUENIL [Concomitant]
  3. PROTONIX [Concomitant]
  4. PROZAC [Concomitant]
  5. HYPOTEARS (BENZALOKONIUM CHLORIDE, EDETATE DISODIUM, MACROGOL, [Concomitant]
  6. SALAGEN [Concomitant]

REACTIONS (11)
  - ABDOMINAL PAIN [None]
  - APTYALISM [None]
  - CONDITION AGGRAVATED [None]
  - DRY EYE [None]
  - DRY MOUTH [None]
  - DYSPEPSIA [None]
  - DYSPHONIA [None]
  - GASTROINTESTINAL DISORDER [None]
  - STOMACH DISCOMFORT [None]
  - URINARY TRACT INFECTION [None]
  - WHITE BLOOD CELL COUNT INCREASED [None]
